FAERS Safety Report 25773391 (Version 1)
Quarter: 2025Q3

REPORT INFORMATION
  Report Type: Spontaneous
  Country: US (occurrence: None)
  Receive Date: 20250906
  Receipt Date: 20250906
  Transmission Date: 20251020
  Serious: Yes (Hospitalization)
  Sender: FDA-CTU
  Company Number: None

PATIENT
  Age: 19 Year
  Sex: Male
  Weight: 33.7 kg

DRUGS (4)
  1. BLEOMYCIN [Suspect]
     Active Substance: BLEOMYCIN SULFATE
     Dates: end: 20250723
  2. CISPLATIN [Suspect]
     Active Substance: CISPLATIN
     Dates: end: 20250706
  3. ETOPOSIDE [Suspect]
     Active Substance: ETOPOSIDE
     Dates: end: 20250706
  4. FILGRASTIM [Suspect]
     Active Substance: FILGRASTIM
     Dates: end: 20250708

REACTIONS (2)
  - Pneumonitis [None]
  - Pulmonary toxicity [None]

NARRATIVE: CASE EVENT DATE: 20250903
